FAERS Safety Report 13340717 (Version 4)
Quarter: 2019Q4

REPORT INFORMATION
  Report Type: Report from Study
  Country: US (occurrence: US)
  Receive Date: 20170316
  Receipt Date: 20191015
  Transmission Date: 20200122
  Serious: Yes (Hospitalization, Other)
  Sender: FDA-Public Use
  Company Number: US-BIOGEN-2017BI00372185

PATIENT
  Age: 38 Year
  Sex: Female

DRUGS (1)
  1. AVONEX [Suspect]
     Active Substance: INTERFERON BETA-1A
     Indication: MULTIPLE SCLEROSIS
     Route: 065
     Dates: start: 19980111

REACTIONS (7)
  - Spinal osteoarthritis [Unknown]
  - Fall [Recovered/Resolved]
  - Asthenia [Unknown]
  - Hydrocephalus [Not Recovered/Not Resolved]
  - Cerebral atrophy [Unknown]
  - Cerebral ventricle dilatation [Unknown]
  - White matter lesion [Unknown]

NARRATIVE: CASE EVENT DATE: 20140604
